FAERS Safety Report 11404394 (Version 1)
Quarter: 2015Q3

REPORT INFORMATION
  Report Type: Spontaneous
  Country: DO (occurrence: DO)
  Receive Date: 20150821
  Receipt Date: 20150821
  Transmission Date: 20151125
  Serious: Yes (Death)
  Sender: FDA-Public Use
  Company Number: DO-SA-2015SA126475

PATIENT
  Age: 48 Year
  Sex: Female

DRUGS (1)
  1. TAXOTERE [Suspect]
     Active Substance: DOCETAXEL
     Indication: TONSILLAR NEOPLASM
     Route: 042

REACTIONS (1)
  - Aplasia [Fatal]
